FAERS Safety Report 23945682 (Version 1)
Quarter: 2024Q2

REPORT INFORMATION
  Report Type: Report from Study
  Country: US (occurrence: US)
  Receive Date: 20240606
  Receipt Date: 20240606
  Transmission Date: 20240716
  Serious: No
  Sender: FDA-Public Use
  Company Number: US-AGIOS-2405US03771

PATIENT

DRUGS (1)
  1. MITAPIVAT [Suspect]
     Active Substance: MITAPIVAT
     Indication: Pyruvate kinase deficiency anaemia
     Route: 065

REACTIONS (16)
  - Blood iron increased [Unknown]
  - Splenomegaly [Unknown]
  - Liver disorder [Unknown]
  - Infection [Unknown]
  - Fatigue [Unknown]
  - Asthenia [Unknown]
  - Dyspnoea [Unknown]
  - Jaundice [Unknown]
  - Pallor [Unknown]
  - Headache [Unknown]
  - Brain fog [Unknown]
  - Disturbance in attention [Unknown]
  - Bone pain [Unknown]
  - Arthralgia [Unknown]
  - Memory impairment [Unknown]
  - Sleep disorder [Unknown]
